FAERS Safety Report 18773253 (Version 1)
Quarter: 2021Q1

REPORT INFORMATION
  Report Type: Spontaneous
  Country: US (occurrence: US)
  Receive Date: 20210122
  Receipt Date: 20210122
  Transmission Date: 20210419
  Serious: Yes (Other)
  Sender: FDA-Public Use
  Company Number: US-GLAXOSMITHKLINE-US2021GSK014242

PATIENT
  Sex: Female

DRUGS (7)
  1. RANITIDINE. [Suspect]
     Active Substance: RANITIDINE
     Dosage: UNK UNK, QD
     Route: 065
     Dates: start: 199001, end: 202011
  2. ZANTAC [Suspect]
     Active Substance: RANITIDINE HYDROCHLORIDE
     Dosage: UNK UNK, QD
     Route: 065
     Dates: start: 199001, end: 201910
  3. RANITIDINE. [Suspect]
     Active Substance: RANITIDINE
     Dosage: UNKNOWN AT THIS TIME BOTH
     Route: 065
     Dates: start: 199001, end: 202011
  4. ZANTAC [Suspect]
     Active Substance: RANITIDINE HYDROCHLORIDE
     Dosage: UNK UNK, QD
     Route: 065
     Dates: start: 199001, end: 201910
  5. RANITIDINE CAPSULE [Suspect]
     Active Substance: RANITIDINE
     Dosage: UNK UNK, QD
     Route: 065
     Dates: start: 199001, end: 202011
  6. ZANTAC [Suspect]
     Active Substance: RANITIDINE HYDROCHLORIDE
     Dosage: UNK UNK, QD
     Route: 065
     Dates: start: 199001, end: 201910
  7. RANITIDINE. [Suspect]
     Active Substance: RANITIDINE
     Dosage: UNKNOWN AT THIS TIME BOTH
     Route: 065
     Dates: start: 199001, end: 202011

REACTIONS (1)
  - Breast cancer [Unknown]
